FAERS Safety Report 4854813-2 (Version None)
Quarter: 2005Q4

REPORT INFORMATION
  Report Type: 
  Country: None (occurrence: None)
  Receive Date: 20051213
  Receipt Date: 20051213
  Transmission Date: 20060501
  Serious: Yes (Hospitalization)
  Sender: FDA-Public Use
  Company Number: 2005161097

PATIENT
  Age: 52 Year
  Sex: Male

DRUGS (4)
  1. ATORVASTATIN CALCIUM [Suspect]
     Indication: DYSLIPIDAEMIA
     Dosage: 20 MG (20 MG 1 IN 1 D) ORAL
     Route: 048
  2. ASPIRIN [Concomitant]
  3. METOPROLOL [Concomitant]
  4. RAMIPRIL [Concomitant]

REACTIONS (1)
  - ANGINA PECTORIS [None]
